FAERS Safety Report 5751393-4 (Version None)
Quarter: 2008Q2

REPORT INFORMATION
  Report Type: 
  Country: None (occurrence: None)
  Receive Date: 20080528
  Receipt Date: 20080522
  Transmission Date: 20081010
  Serious: Yes (Hospitalization)
  Sender: FDA-Public Use
  Company Number: AU-ABBOTT-08P-008-0453117-00

PATIENT
  Sex: Male

DRUGS (6)
  1. GOPTEN [Suspect]
     Indication: DRUG USE FOR UNKNOWN INDICATION
     Dosage: 4 MG DAILY
     Route: 048
     Dates: start: 20070130, end: 20070131
  2. ACETYLSALICYLIC ACID SRT [Interacting]
     Indication: DRUG USE FOR UNKNOWN INDICATION
     Dosage: 100 MG DAILY
     Route: 048
     Dates: start: 20070130, end: 20070131
  3. FUROSEMIDE [Interacting]
     Indication: DRUG USE FOR UNKNOWN INDICATION
     Dosage: 20 MG DAILY
     Route: 048
     Dates: start: 20070130, end: 20070131
  4. IRBESARTAN [Interacting]
     Indication: DRUG USE FOR UNKNOWN INDICATION
     Dosage: 150 MG DAILY
     Route: 048
     Dates: start: 20070130, end: 20070131
  5. SPIRONOLACTONE [Interacting]
     Indication: DRUG USE FOR UNKNOWN INDICATION
     Dates: start: 20070130, end: 20070131
  6. ANTIBIOTIC [Interacting]
     Indication: DRUG USE FOR UNKNOWN INDICATION
     Route: 042

REACTIONS (5)
  - DEHYDRATION [None]
  - DRUG INTERACTION [None]
  - DYSGEUSIA [None]
  - NAUSEA [None]
  - RENAL FAILURE ACUTE [None]
